FAERS Safety Report 13721706 (Version 1)
Quarter: 2017Q3

REPORT INFORMATION
  Report Type: Report from Study
  Country: TR (occurrence: TR)
  Receive Date: 20170706
  Receipt Date: 20170706
  Transmission Date: 20171127
  Serious: Yes (Life-Threatening, Hospitalization, Disabling, Other)
  Sender: FDA-Public Use
  Company Number: TR-EMD SERONO-8109328

PATIENT
  Age: 57 Year
  Sex: Female
  Weight: 50 kg

DRUGS (3)
  1. AVELUMAB [Suspect]
     Active Substance: AVELUMAB
     Indication: NON-SMALL CELL LUNG CANCER
     Route: 042
     Dates: start: 20160620, end: 20160901
  2. KORDEXA [Concomitant]
     Active Substance: DEXAMETHASONE
     Indication: PAIN
     Route: 048
     Dates: start: 20160906
  3. CONTRAMAL [Concomitant]
     Active Substance: TRAMADOL HYDROCHLORIDE
     Indication: BACK PAIN
     Route: 048
     Dates: start: 20160905

REACTIONS (2)
  - Encephalitis [Recovered/Resolved with Sequelae]
  - Colitis [Recovered/Resolved]

NARRATIVE: CASE EVENT DATE: 20160918
